FAERS Safety Report 9668997 (Version 1)
Quarter: 2013Q4

REPORT INFORMATION
  Report Type: Spontaneous
  Country: US (occurrence: US)
  Receive Date: 20131105
  Receipt Date: 20131105
  Transmission Date: 20140711
  Serious: No
  Sender: FDA-Public Use
  Company Number: US-PFIZER INC-2013312313

PATIENT
  Age: 83 Year
  Sex: Female
  Weight: 58.05 kg

DRUGS (1)
  1. PREMARIN [Suspect]
     Indication: HORMONE REPLACEMENT THERAPY
     Dosage: UNK
     Route: 048
     Dates: start: 1982

REACTIONS (5)
  - Joint swelling [Unknown]
  - Swelling [Unknown]
  - Abdominal distension [Unknown]
  - Fluid retention [Unknown]
  - Breast enlargement [Unknown]
